FAERS Safety Report 5067514-5 (Version None)
Quarter: 2006Q3

REPORT INFORMATION
  Report Type: 
  Country: None (occurrence: None)
  Receive Date: 20060728
  Receipt Date: 20060711
  Transmission Date: 20061208
  Serious: Yes (Hospitalization)
  Sender: FDA-Public Use
  Company Number: US200605002782

PATIENT
  Sex: Male
  Weight: 117.9 kg

DRUGS (2)
  1. ZYPREXA [Suspect]
     Indication: SCHIZOPHRENIA, PARANOID TYPE
     Dosage: 30 MG, ORAL
     Route: 048
     Dates: start: 20000221
  2. PAXIL [Concomitant]

REACTIONS (4)
  - CHOLECYSTITIS [None]
  - FOOD INTOLERANCE [None]
  - PANCREATIC DISORDER [None]
  - PRESCRIBED OVERDOSE [None]
